FAERS Safety Report 11453395 (Version 1)
Quarter: 2015Q3

REPORT INFORMATION
  Report Type: Spontaneous
  Country: US (occurrence: US)
  Receive Date: 20150831
  Receipt Date: 20150831
  Transmission Date: 20151125
  Serious: No
  Sender: FDA-Public Use
  Company Number: US-ELI_LILLY_AND_COMPANY-US200812005784

PATIENT
  Age: 51 Year
  Sex: Male

DRUGS (15)
  1. DYAZIDE [Concomitant]
     Active Substance: HYDROCHLOROTHIAZIDE\TRIAMTERENE
  2. ATENOLOL. [Concomitant]
     Active Substance: ATENOLOL
     Dosage: 50 MG, DAILY (1/D)
  3. CYMBALTA [Suspect]
     Active Substance: DULOXETINE HYDROCHLORIDE
     Dosage: 60 MG, UNK
     Route: 048
     Dates: end: 20081120
  4. SIMVASTATINE [Concomitant]
     Active Substance: SIMVASTATIN
     Dosage: 40 MG, EACH EVENING
  5. DIPYRIDAMOL SANDOZ [Concomitant]
     Dosage: 75 MG, 2/D
  6. AMBIEN [Concomitant]
     Active Substance: ZOLPIDEM TARTRATE
  7. K-DUR [Concomitant]
     Active Substance: POTASSIUM CHLORIDE
  8. LISINOPRIL. [Concomitant]
     Active Substance: LISINOPRIL
     Dosage: 40 MG, DAILY (1/D)
  9. ASA [Concomitant]
     Active Substance: ASPIRIN
     Dosage: 325 MG, UNK
  10. NORVASC [Concomitant]
     Active Substance: AMLODIPINE BESYLATE
     Dosage: 5 MG, DAILY (1/D)
  11. LIDODERM [Concomitant]
     Active Substance: LIDOCAINE
  12. VICODIN [Concomitant]
     Active Substance: ACETAMINOPHEN\HYDROCODONE BITARTRATE
  13. LYRICA [Concomitant]
     Active Substance: PREGABALIN
     Dosage: 150 MG, 3/D
  14. CYMBALTA [Suspect]
     Active Substance: DULOXETINE HYDROCHLORIDE
     Indication: NEURALGIA
     Dosage: 30 MG, UNK
     Route: 048
     Dates: start: 2008
  15. CYMBALTA [Suspect]
     Active Substance: DULOXETINE HYDROCHLORIDE
     Dosage: 90 MG, UNK
     Route: 048
     Dates: start: 20081121, end: 200812

REACTIONS (13)
  - Urinary hesitation [Not Recovered/Not Resolved]
  - Sleep disorder [Not Recovered/Not Resolved]
  - Intracranial aneurysm [Unknown]
  - Anger [Unknown]
  - Mental status changes [Unknown]
  - Nervous system disorder [Not Recovered/Not Resolved]
  - Tremor [Not Recovered/Not Resolved]
  - Insomnia [Not Recovered/Not Resolved]
  - Weight decreased [Not Recovered/Not Resolved]
  - Nausea [Unknown]
  - Feeling abnormal [Not Recovered/Not Resolved]
  - Muscle spasms [Unknown]
  - Electrocardiogram abnormal [Unknown]

NARRATIVE: CASE EVENT DATE: 20081025
